FAERS Safety Report 10617330 (Version 2)
Quarter: 2014Q4

REPORT INFORMATION
  Report Type: Report from Study
  Country: CZ (occurrence: CZ)
  Receive Date: 20141201
  Receipt Date: 20141216
  Transmission Date: 20150529
  Serious: Yes (Hospitalization)
  Sender: FDA-Public Use
  Company Number: CZ-GLAXOSMITHKLINE-CZ2014GSK028652

PATIENT
  Age: 70 Year
  Sex: Male
  Weight: 92 kg

DRUGS (5)
  1. TRAMABENE [Concomitant]
     Indication: ARTHRALGIA
     Dosage: 100 MG, BID
     Route: 048
     Dates: start: 20141120
  2. IBERSARTAN (UNKNOWN MEDICATION FOR HYPERTENSION) [Concomitant]
     Indication: HYPERTENSION
     Dosage: 150 MG, UNK
     Route: 048
  3. DABRAFENIB [Suspect]
     Active Substance: DABRAFENIB
     Indication: METASTATIC MALIGNANT MELANOMA
     Dosage: 150 MG, UNK
  4. TRAMETINIB [Suspect]
     Active Substance: TRAMETINIB
     Indication: METASTATIC MALIGNANT MELANOMA
     Dosage: 2 MG, QD
  5. IBERSARTAN (UNKNOWN MEDICATION FOR HYPERTENSION) [Concomitant]
     Indication: HYPERTENSION
     Dosage: 150 MG, UNK
     Route: 048

REACTIONS (2)
  - Vision blurred [Recovered/Resolved]
  - Decreased appetite [Recovered/Resolved]

NARRATIVE: CASE EVENT DATE: 20141126
